FAERS Safety Report 10017907 (Version 1)
Quarter: 2014Q1

REPORT INFORMATION
  Report Type: Spontaneous
  Country: FR (occurrence: FR)
  Receive Date: 20140318
  Receipt Date: 20140318
  Transmission Date: 20141002
  Serious: Yes (Hospitalization)
  Sender: FDA-Public Use
  Company Number: FR-SA-2014SA030574

PATIENT
  Age: 73 Year
  Sex: Female

DRUGS (7)
  1. ARAVA [Suspect]
     Indication: RHEUMATOID ARTHRITIS
     Route: 048
     Dates: start: 20140213
  2. CEFTRIAXONE SODIUM [Concomitant]
     Dates: start: 20140216, end: 20140217
  3. METOCLOPRAMIDE [Concomitant]
     Dates: start: 20140216, end: 20140217
  4. INEXIUM [Concomitant]
     Route: 048
  5. PNEUMOREL [Concomitant]
  6. DITROPAN [Concomitant]
     Route: 048
     Dates: end: 20140217
  7. LOVENOX [Concomitant]
     Route: 058

REACTIONS (1)
  - Transient ischaemic attack [Recovered/Resolved]
